FAERS Safety Report 9123305 (Version 6)
Quarter: 2013Q3

REPORT INFORMATION
  Report Type: Report from Study
  Country: IT (occurrence: IT)
  Receive Date: 20130227
  Receipt Date: 20130830
  Transmission Date: 20140515
  Serious: Yes (Life-Threatening, Hospitalization, Disabling)
  Sender: FDA-Public Use
  Company Number: IT-SANOFI-AVENTIS-2013SA018232

PATIENT
  Age: 73 Year
  Sex: Male
  Weight: 92 kg

DRUGS (10)
  1. CABAZITAXEL [Suspect]
     Indication: PROSTATE CANCER METASTATIC
     Route: 042
     Dates: start: 20120726, end: 20120726
  2. CABAZITAXEL [Suspect]
     Indication: PROSTATE CANCER METASTATIC
     Route: 042
     Dates: start: 20130201, end: 20130201
  3. PREDNISONE [Suspect]
     Indication: PROSTATE CANCER METASTATIC
     Route: 048
     Dates: start: 20120726, end: 20130215
  4. CLEXANE [Suspect]
     Indication: PRODUCT USED FOR UNKNOWN INDICATION
     Route: 058
     Dates: start: 20121008
  5. ZINADRIL [Concomitant]
     Route: 048
     Dates: start: 2002
  6. PREDNISONE [Concomitant]
     Indication: PROPHYLAXIS
     Route: 048
     Dates: start: 20121008
  7. TRIPTORELIN [Concomitant]
     Route: 030
     Dates: start: 20090128
  8. SOLOSA [Concomitant]
     Route: 048
     Dates: start: 20121008
  9. ALFUSOZINA WINTHROP [Concomitant]
     Route: 048
     Dates: start: 20121008
  10. SIMVASTATIN [Concomitant]
     Indication: PROPHYLAXIS
     Route: 048
     Dates: start: 20121008

REACTIONS (1)
  - Cerebral haematoma [Recovering/Resolving]
